FAERS Safety Report 4639613-0 (Version None)
Quarter: 2005Q2

REPORT INFORMATION
  Report Type: 
  Country: None (occurrence: None)
  Receive Date: 20050328
  Receipt Date: 20041229
  Transmission Date: 20051028
  Serious: No
  Sender: FDA-Public Use
  Company Number: USA041287164

PATIENT
  Sex: Male

DRUGS (2)
  1. STRATTERA [Suspect]
     Indication: DISTURBANCE IN ATTENTION
     Dates: start: 20041224
  2. EFFEXOR [Concomitant]

REACTIONS (2)
  - CHROMATURIA [None]
  - SOMNOLENCE [None]
